FAERS Safety Report 9379186 (Version 1)
Quarter: 2013Q3

REPORT INFORMATION
  Report Type: Report from Study
  Country: US (occurrence: US)
  Receive Date: 20130702
  Receipt Date: 20130702
  Transmission Date: 20140515
  Serious: Yes (Hospitalization, Other)
  Sender: FDA-Public Use
  Company Number: US-JNJFOC-20130616576

PATIENT
  Sex: Female
  Weight: 72.58 kg

DRUGS (3)
  1. REMICADE [Suspect]
     Indication: CROHN^S DISEASE
     Route: 042
     Dates: start: 201303, end: 201305
  2. REMICADE [Suspect]
     Indication: CROHN^S DISEASE
     Route: 042
     Dates: start: 2007, end: 2007
  3. GLEEVEC [Concomitant]
     Indication: GASTROINTESTINAL NEOPLASM
     Route: 048
     Dates: start: 2001

REACTIONS (5)
  - Intestinal obstruction [Recovered/Resolved]
  - Drug specific antibody present [Not Recovered/Not Resolved]
  - Pain [Recovering/Resolving]
  - Arthralgia [Recovering/Resolving]
  - Hypokinesia [Recovering/Resolving]
